FAERS Safety Report 21812314 (Version 2)
Quarter: 2023Q1

REPORT INFORMATION
  Report Type: Spontaneous
  Country: US (occurrence: US)
  Receive Date: 20230103
  Receipt Date: 20230221
  Transmission Date: 20230418
  Serious: Yes (Other)
  Sender: FDA-Public Use
  Company Number: US-PFIZER INC-2021498153

PATIENT
  Age: 32 Year

DRUGS (2)
  1. TOVIAZ [Suspect]
     Active Substance: FESOTERODINE FUMARATE
     Dosage: UNK
  2. PREMARIN [Suspect]
     Active Substance: ESTROGENS, CONJUGATED
     Dosage: 0.45 MG (MONDAY, WEDNESDAY, AND FRIDAY)

REACTIONS (9)
  - Spinal fracture [Unknown]
  - Knee operation [Unknown]
  - Hip surgery [Unknown]
  - Spinal operation [Unknown]
  - Shoulder arthroplasty [Unknown]
  - Road traffic accident [Unknown]
  - Nerve injury [Unknown]
  - Arthralgia [Unknown]
  - Pain [Unknown]

NARRATIVE: CASE EVENT DATE: 19660101
